FAERS Safety Report 20292010 (Version 2)
Quarter: 2023Q2

REPORT INFORMATION
  Report Type: Spontaneous
  Country: CA (occurrence: CA)
  Receive Date: 20220104
  Receipt Date: 20230525
  Transmission Date: 20230722
  Serious: Yes (Hospitalization, Other)
  Sender: FDA-Public Use
  Company Number: CA-TEVA-2021-CA-1994766

PATIENT
  Age: 49 Year
  Sex: Female

DRUGS (25)
  1. CLONAZEPAM [Interacting]
     Active Substance: CLONAZEPAM
     Indication: Depression
     Route: 065
  2. CLONAZEPAM [Interacting]
     Active Substance: CLONAZEPAM
     Indication: Anxiety
     Route: 065
  3. CLONAZEPAM [Interacting]
     Active Substance: CLONAZEPAM
     Route: 065
  4. CLONAZEPAM [Interacting]
     Active Substance: CLONAZEPAM
     Route: 065
  5. FLUVOXAMINE [Interacting]
     Active Substance: FLUVOXAMINE
     Indication: Product used for unknown indication
     Route: 065
  6. FLUVOXAMINE [Interacting]
     Active Substance: FLUVOXAMINE
     Route: 065
  7. PAROXETINE [Interacting]
     Active Substance: PAROXETINE
     Indication: Depression
     Route: 065
  8. PAROXETINE [Interacting]
     Active Substance: PAROXETINE
     Indication: Anxiety
     Route: 065
  9. PAROXETINE [Interacting]
     Active Substance: PAROXETINE
     Route: 065
  10. PAROXETINE [Interacting]
     Active Substance: PAROXETINE
     Route: 065
  11. PROPOFOL [Interacting]
     Active Substance: PROPOFOL
     Indication: Induction of anaesthesia
     Route: 065
  12. QUETIAPINE FUMARATE [Interacting]
     Active Substance: QUETIAPINE FUMARATE
     Indication: Depression
     Dosage: 50 MILLIGRAM DAILY;
     Route: 065
  13. QUETIAPINE FUMARATE [Interacting]
     Active Substance: QUETIAPINE FUMARATE
     Indication: Anxiety
     Dosage: 50 MILLIGRAM DAILY;
     Route: 065
  14. QUETIAPINE FUMARATE [Interacting]
     Active Substance: QUETIAPINE FUMARATE
     Route: 065
  15. QUETIAPINE FUMARATE [Interacting]
     Active Substance: QUETIAPINE FUMARATE
     Dosage: 50 MILLIGRAM DAILY;
     Route: 065
  16. DIAZEPAM [Interacting]
     Active Substance: DIAZEPAM
     Indication: Preoperative care
     Route: 065
  17. FENTANYL [Interacting]
     Active Substance: FENTANYL
     Indication: Product used for unknown indication
     Route: 042
  18. MEPERIDINE [Interacting]
     Active Substance: MEPERIDINE
     Indication: Product used for unknown indication
     Route: 065
  19. METHYLENE BLUE [Interacting]
     Active Substance: METHYLENE BLUE
     Indication: Hypotension
     Route: 065
  20. MIDAZOLAM [Interacting]
     Active Substance: MIDAZOLAM
     Indication: Anaesthesia
     Route: 065
  21. NOREPINEPHRINE [Interacting]
     Active Substance: NOREPINEPHRINE
     Indication: Hypotension
     Route: 065
  22. ROCURONIUM BROMIDE [Interacting]
     Active Substance: ROCURONIUM BROMIDE
     Indication: Hypotonia
     Route: 065
  23. SEVOFLURANE [Interacting]
     Active Substance: SEVOFLURANE
     Indication: Maintenance of anaesthesia
     Route: 065
  24. DIAZEPAM [Interacting]
     Active Substance: DIAZEPAM
     Indication: Preoperative care
     Route: 065
  25. MEPERIDINE HYDROCHLORIDE [Suspect]
     Active Substance: MEPERIDINE HYDROCHLORIDE
     Indication: Product used for unknown indication
     Route: 065

REACTIONS (11)
  - Alanine aminotransferase increased [Not Recovered/Not Resolved]
  - Amylase increased [Not Recovered/Not Resolved]
  - Hypotension [Not Recovered/Not Resolved]
  - Blood creatine phosphokinase increased [Not Recovered/Not Resolved]
  - Blood lactate dehydrogenase increased [Not Recovered/Not Resolved]
  - Blood potassium increased [Not Recovered/Not Resolved]
  - Myoglobin urine present [Not Recovered/Not Resolved]
  - Serotonin syndrome [Not Recovered/Not Resolved]
  - Toxic encephalopathy [Not Recovered/Not Resolved]
  - Troponin increased [Not Recovered/Not Resolved]
  - Drug interaction [Not Recovered/Not Resolved]
